FAERS Safety Report 25900627 (Version 1)
Quarter: 2025Q4

REPORT INFORMATION
  Report Type: Report from Study
  Country: US (occurrence: US)
  Receive Date: 20251009
  Receipt Date: 20251009
  Transmission Date: 20260118
  Serious: Yes (Other)
  Sender: PFIZER
  Company Number: US-PFIZER INC-202500199296

PATIENT

DRUGS (2)
  1. SIROLIMUS [Suspect]
     Active Substance: SIROLIMUS
     Indication: Pulmonary vein stenosis
     Dosage: LOADING DOSE: 2-3 MG/M2 (MAX 6 MG)
  2. SIROLIMUS [Suspect]
     Active Substance: SIROLIMUS
     Dosage: 1 MG/M2, DAILY, MAX 2 MG

REACTIONS (1)
  - Hypertriglyceridaemia [Unknown]
